FAERS Safety Report 10250451 (Version 1)
Quarter: 2014Q2

REPORT INFORMATION
  Report Type: Report from Study
  Country: VE (occurrence: VE)
  Receive Date: 20140620
  Receipt Date: 20140620
  Transmission Date: 20141212
  Serious: Yes (Death)
  Sender: FDA-Public Use
  Company Number: VE-SA-2014SA082174

PATIENT
  Age: 82 Year
  Sex: Male

DRUGS (4)
  1. PLAVIX [Suspect]
     Indication: ANGIOPATHY
     Route: 048
  2. ASPIRIN [Concomitant]
     Indication: CARDIAC DISORDER
  3. NEURONTIN [Concomitant]
     Indication: PAIN
  4. CALCIUM [Concomitant]
     Indication: PLASMA CELL MYELOMA

REACTIONS (1)
  - Cardio-respiratory arrest [Fatal]
